FAERS Safety Report 9611831 (Version 2)
Quarter: 2013Q4

REPORT INFORMATION
  Report Type: Spontaneous
  Country: US (occurrence: US)
  Receive Date: 20131010
  Receipt Date: 20131106
  Transmission Date: 20140711
  Serious: Yes (Hospitalization, Other)
  Sender: FDA-Public Use
  Company Number: US-JNJFOC-20131002312

PATIENT
  Age: 53 Year
  Sex: Male
  Weight: 60 kg

DRUGS (54)
  1. XARELTO [Suspect]
     Indication: PULMONARY EMBOLISM
     Dosage: FOR 2 WEEKS
     Route: 048
     Dates: start: 20130826
  2. XARELTO [Suspect]
     Indication: PULMONARY EMBOLISM
     Route: 048
  3. XARELTO [Suspect]
     Indication: CEREBROVASCULAR ACCIDENT PROPHYLAXIS
     Route: 048
  4. XARELTO [Suspect]
     Indication: CEREBROVASCULAR ACCIDENT PROPHYLAXIS
     Dosage: FOR 2 WEEKS
     Route: 048
     Dates: start: 20130826
  5. XARELTO [Suspect]
     Indication: ATRIAL FIBRILLATION
     Dosage: FOR 2 WEEKS
     Route: 048
     Dates: start: 20130826
  6. XARELTO [Suspect]
     Indication: ATRIAL FIBRILLATION
     Route: 048
  7. HEPARIN [Concomitant]
     Dosage: 1 ML, IV PUSH, ONCE
     Route: 042
  8. HEPARIN [Concomitant]
     Dosage: FLUSH AS??NEEDED (PICC LINE CARE AFTER EACH USE, AT LEAST ONCE PER DAY.
     Route: 042
  9. NORCO [Concomitant]
     Indication: PAIN
     Dosage: 5 MG-325 MG
     Route: 048
  10. TYLENOL [Concomitant]
     Indication: PAIN
     Dosage: 2 TAB(S), ORAL, Q6HR INT, PRN
     Route: 048
  11. AVELOX [Concomitant]
     Dosage: AT NOON
     Route: 048
  12. BACID [Concomitant]
     Route: 048
  13. BENEFIBER [Concomitant]
     Route: 048
  14. SEROQUEL [Concomitant]
     Route: 048
  15. SILVADENE [Concomitant]
     Route: 061
  16. VITAMIN D2 [Concomitant]
     Route: 048
  17. ALBUTEROL [Concomitant]
     Indication: WHEEZING
     Dosage: 2.5 MG/3 ML (0.083%) INHALATION SOLUTION: 2.5 MG, 3 ML, INH, Q I HR,
     Route: 065
  18. ALBUTEROL [Concomitant]
     Indication: DYSPNOEA
     Dosage: 2.5 MG/3 ML (0.083%) INHALATION SOLUTION: 2.5 MG, 3 ML, INH, Q I HR,
     Route: 065
  19. DUO NEB [Concomitant]
     Indication: DYSPNOEA
     Dosage: 2.5/0.5
     Route: 065
  20. BUDESONIDE [Concomitant]
     Dosage: 0.5 MG/2 ML INHALATION SUSPENSION: 0.5 MG, 2 ML, NEB, BID, 120 ML
     Route: 065
  21. DIFLUCAN [Concomitant]
     Route: 048
  22. FOLVITE [Concomitant]
     Route: 048
  23. MAGNESIUM OXIDE [Concomitant]
     Route: 048
  24. MAGNESIUM OXIDE [Concomitant]
     Dosage: 241.3 MG ELEMENTAL MAGNESIUM
     Route: 048
  25. METOPROLOL SUCCINATE [Concomitant]
     Route: 048
  26. REMERON [Concomitant]
     Route: 048
  27. COUMADIN [Concomitant]
     Indication: THROMBOSIS
     Route: 048
  28. COUMADIN [Concomitant]
     Indication: THROMBOSIS
     Dosage: AT BED TIME OR AS DIRECTED BASED ON INR
     Route: 048
  29. ACETAMINOPHEN [Concomitant]
     Indication: PAIN
     Route: 048
  30. CHOLESTYRAMINE [Concomitant]
     Indication: DIARRHOEA
     Dosage: 1 PACKET(S), ORAL, DAILY, DISSOLVE IN 6 TO 8 OUNCES OF WATER
     Route: 048
  31. CIPROFLOXACIN [Concomitant]
     Route: 048
  32. DOXYCYCLINE [Concomitant]
     Route: 048
  33. PROBIOTIC [Concomitant]
     Route: 048
  34. METRONIDAZOLE [Concomitant]
     Route: 048
  35. PANTOPRAZOLE [Concomitant]
     Route: 048
  36. QUETIAPINE [Concomitant]
     Route: 048
  37. SILVADENE [Concomitant]
     Dosage: 1 APP, TOP, DAILY, APPLY DAILY TO??AFFECTED AREAS ON FEET AS DIRECTED BY THE WOUND TEAM, 50 GM.
     Route: 061
  38. WHEAT DEXTRIN [Concomitant]
     Dosage: ONE PACKET
     Route: 048
  39. CARBAMIDE PEROXIDE [Concomitant]
     Indication: CERUMEN IMPACTION
     Dosage: 6.5 %
     Route: 047
  40. FLEET-ENEMA [Concomitant]
     Indication: CONSTIPATION
     Dosage: 7 G-I9 G RECTAL ENEMA: 1 EA, PR, DAILY, I33 ML
     Route: 054
  41. BISACODYL [Concomitant]
     Indication: CONSTIPATION
     Route: 054
  42. DOXYCYCLINE HYCLATE [Concomitant]
     Route: 048
  43. AZACTAM [Concomitant]
     Route: 042
  44. OXYCODONE [Concomitant]
     Route: 048
  45. SORBITOL [Concomitant]
     Indication: CONSTIPATION
     Route: 048
  46. VANCOMYCIN [Concomitant]
     Indication: CLOSTRIDIUM DIFFICILE COLITIS
     Route: 048
  47. TOPROL XL [Concomitant]
     Indication: BLOOD PRESSURE
     Route: 048
  48. TOPROL XL [Concomitant]
     Indication: CARDIAC DISORDER
     Route: 048
  49. MULTIVITAMINES [Concomitant]
     Route: 048
  50. PRILOSEC [Concomitant]
     Indication: GASTRIC DISORDER
     Route: 048
  51. LEVAQUIN [Concomitant]
     Route: 048
  52. MOXIFLOXACIN [Concomitant]
     Route: 065
  53. MEGACE [Concomitant]
     Dosage: 40 MG/ML
     Route: 065
  54. PLANTAGO OVATA LEAF [Concomitant]
     Dosage: ORAL PACKET
     Route: 048

REACTIONS (4)
  - Septic shock [Recovering/Resolving]
  - Renal failure acute [Recovering/Resolving]
  - Haemoglobin decreased [Unknown]
  - Inappropriate schedule of drug administration [Unknown]
